FAERS Safety Report 13642307 (Version 1)
Quarter: 2017Q2

REPORT INFORMATION
  Report Type: Spontaneous
  Country: AU (occurrence: AU)
  Receive Date: 20170612
  Receipt Date: 20170612
  Transmission Date: 20170830
  Serious: Yes (Death)
  Sender: FDA-Public Use
  Company Number: AU-PFIZER INC-2017227843

PATIENT
  Sex: Male

DRUGS (3)
  1. ATROPINE. [Suspect]
     Active Substance: ATROPINE
     Indication: SALIVARY HYPERSECRETION
     Dosage: UNK
  2. CLOPINE [Suspect]
     Active Substance: CLOZAPINE
     Dosage: UNK
  3. HYOSCINE HYDROBROMIDE [Suspect]
     Active Substance: SCOPOLAMINE
     Indication: SALIVARY HYPERSECRETION
     Dosage: UNK

REACTIONS (2)
  - Constipation [Fatal]
  - Aspiration [Fatal]
